FAERS Safety Report 10088006 (Version 3)
Quarter: 2014Q2

REPORT INFORMATION
  Report Type: Spontaneous
  Country: IQ (occurrence: IQ)
  Receive Date: 20140420
  Receipt Date: 20140521
  Transmission Date: 20141212
  Serious: Yes (Life-Threatening, Hospitalization, Other)
  Sender: FDA-Public Use
  Company Number: PHHY2014IQ047479

PATIENT
  Age: 27 Year
  Sex: Male
  Weight: 59 kg

DRUGS (4)
  1. EXJADE [Suspect]
     Indication: THALASSAEMIA BETA
     Dosage: 1500 MG,
     Route: 048
     Dates: start: 20100915
  2. EXJADE [Suspect]
     Dosage: UNK UKN, UNK
     Route: 048
  3. EXJADE [Suspect]
     Dosage: UNK UKN, UNK
     Route: 048
     Dates: end: 20140422
  4. FOLIC ACID [Concomitant]
     Indication: THALASSAEMIA BETA
     Dosage: 5 MG, UNK
     Route: 048
     Dates: start: 19910508

REACTIONS (15)
  - Dyspnoea [Recovered/Resolved]
  - Cyanosis central [Recovered/Resolved]
  - Dysphagia [Recovered/Resolved]
  - Pruritus [Recovered/Resolved]
  - Localised oedema [Recovered/Resolved]
  - Face oedema [Recovered/Resolved]
  - Rash generalised [Recovered/Resolved]
  - Chest pain [Not Recovered/Not Resolved]
  - Arthralgia [Unknown]
  - Ocular discomfort [Unknown]
  - Malaise [Unknown]
  - Chills [Unknown]
  - Pain [Unknown]
  - Pyrexia [Unknown]
  - Headache [Unknown]
